FAERS Safety Report 16822743 (Version 1)
Quarter: 2019Q3

REPORT INFORMATION
  Report Type: Spontaneous
  Country: IT (occurrence: IT)
  Receive Date: 20190918
  Receipt Date: 20190918
  Transmission Date: 20191005
  Serious: Yes (Other)
  Sender: FDA-Public Use
  Company Number: IT-BRISTOL-MYERS SQUIBB COMPANY-BMS-2019-056423

PATIENT
  Age: 85 Year
  Sex: Male

DRUGS (1)
  1. OPDIVO [Suspect]
     Active Substance: NIVOLUMAB
     Indication: RENAL CANCER
     Dosage: 480 MILLIGRAM, 1 CYCLICAL
     Route: 042
     Dates: start: 20170530, end: 20190507

REACTIONS (4)
  - Xerophthalmia [Unknown]
  - Back pain [Unknown]
  - Asthenia [Unknown]
  - Dry eye [Unknown]

NARRATIVE: CASE EVENT DATE: 20190604
